FAERS Safety Report 16685985 (Version 1)
Quarter: 2019Q3

REPORT INFORMATION
  Report Type: Spontaneous
  Country: IT (occurrence: IT)
  Receive Date: 20190809
  Receipt Date: 20190809
  Transmission Date: 20191004
  Serious: Yes (Other)
  Sender: FDA-Public Use
  Company Number: IT-ROCHE-2374564

PATIENT
  Age: 79 Year
  Sex: Female

DRUGS (6)
  1. NICETILE [Concomitant]
     Active Substance: ACETYLCARNITINE HYDROCHLORIDE
  2. LANSOPRAZOLE. [Concomitant]
     Active Substance: LANSOPRAZOLE
  3. DIBASE [Concomitant]
     Active Substance: CHOLECALCIFEROL
  4. SALAZOPYRIN EN [Concomitant]
     Active Substance: SULFASALAZINE
  5. TOCILIZUMAB. [Suspect]
     Active Substance: TOCILIZUMAB
     Indication: RHEUMATOID ARTHRITIS
     Route: 058
     Dates: start: 20190325, end: 20190715
  6. FOLINA [FOLIC ACID] [Concomitant]
     Active Substance: FOLIC ACID

REACTIONS (1)
  - Colitis ulcerative [Recovering/Resolving]

NARRATIVE: CASE EVENT DATE: 20190715
